FAERS Safety Report 8937697 (Version 2)
Quarter: 2012Q4

REPORT INFORMATION
  Report Type: Spontaneous
  Country: US (occurrence: None)
  Receive Date: 20121123
  Receipt Date: 20121130
  Transmission Date: 20130627
  Serious: Yes (Death, Other)
  Sender: FDA-Public Use
  Company Number: TPA2012A09143

PATIENT
  Sex: Male

DRUGS (1)
  1. ACTOS (PIOGLITAZONE HYDROCHLORIDE) [Suspect]
     Indication: TYPE II DIABETES MELLITUS
     Dates: start: 2007, end: 201102

REACTIONS (1)
  - Bladder cyst [None]
